FAERS Safety Report 4655491-8 (Version None)
Quarter: 2005Q2

REPORT INFORMATION
  Report Type: 
  Country: None (occurrence: None)
  Receive Date: 20050505
  Receipt Date: 20050406
  Transmission Date: 20051028
  Serious: Yes (Other)
  Sender: FDA-Public Use
  Company Number: 2004220636US

PATIENT
  Age: 59 Year
  Sex: Female
  Weight: 106.5953 kg

DRUGS (28)
  1. PROVERA [Suspect]
     Indication: HORMONE REPLACEMENT THERAPY
     Dates: start: 19830101, end: 19960801
  2. DEPO-TESTADIOL [Suspect]
     Indication: HORMONE REPLACEMENT THERAPY
     Dates: start: 19911201, end: 19971101
  3. DEPO-TESTADIOL [Suspect]
     Indication: HORMONE REPLACEMENT THERAPY
     Dates: start: 19980901
  4. CONJUGATED ESTROGENS [Suspect]
     Indication: HORMONE REPLACEMENT THERAPY
     Dates: start: 19830101, end: 19911201
  5. PROVELLA-14 (ESTROGENS CONJUGATED, MEDROXYPROGESTERONE ACETATE) [Suspect]
     Indication: HORMONE REPLACEMENT THERAPY
     Dates: start: 19960801, end: 20020417
  6. ESTRADIOL [Suspect]
     Indication: HORMONE REPLACEMENT THERAPY
     Dates: start: 19911201, end: 19960801
  7. LOSARTAN POTASSIUM [Concomitant]
  8. FUROSEMIDE [Concomitant]
  9. AMLODIPINE BESYLATE [Concomitant]
  10. BUSPIRONE HCL [Concomitant]
  11. ATORVASTATIN CALCIUM [Concomitant]
  12. RISEDRONATE SODIUM (RISEDRONATE SODIUM) [Concomitant]
  13. ANASTROZOLE (ANASTROZOLE) [Concomitant]
  14. CANDESARTAN CILEXETIL (CANDESARTAN CILEXETIL) [Concomitant]
  15. ROSIGLITAZONE MALEATE [Concomitant]
  16. DILTIAZEM HYDROCHLORIDE [Concomitant]
  17. OXAPROZIN [Concomitant]
  18. ALENDRONATE SODIUM [Concomitant]
  19. DIGOXIN [Concomitant]
  20. FUROSEMIDE [Concomitant]
  21. GABAPENTIN [Concomitant]
  22. ESOMEPRAZOLE (ESOMEPRAZOLE) [Concomitant]
  23. POTASSIUM CHLORIDE [Concomitant]
  24. FLUOXETINE HCL [Concomitant]
  25. MONTELUKAST SODIUM [Concomitant]
  26. METOPROLOL TARTRATE [Concomitant]
  27. ROFECOXIB [Concomitant]
  28. SERTRALINE HCL [Concomitant]

REACTIONS (1)
  - BREAST CANCER FEMALE [None]
